FAERS Safety Report 9387466 (Version 1)
Quarter: 2013Q3

REPORT INFORMATION
  Report Type: Spontaneous
  Country: US (occurrence: None)
  Receive Date: 20130702
  Receipt Date: 20130702
  Transmission Date: 20140515
  Serious: Yes (Other)
  Sender: FDA-Public Use
  Company Number: 2013P1009646

PATIENT
  Age: 40 Year
  Sex: Male

DRUGS (4)
  1. INFUMORPH [Suspect]
     Indication: PAIN
  2. INFUMORPH [Suspect]
     Indication: POST LAMINECTOMY SYNDROME
  3. MORPHINE [Suspect]
  4. MORPHINE [Suspect]
     Indication: POST LAMINECTOMY SYNDROME

REACTIONS (3)
  - Discomfort [None]
  - Intercepted medication error [None]
  - Metastatic neoplasm [None]
